FAERS Safety Report 5372969-2 (Version None)
Quarter: 2007Q2

REPORT INFORMATION
  Report Type: 
  Country: None (occurrence: None)
  Receive Date: 20070626
  Receipt Date: 20070619
  Transmission Date: 20071010
  Serious: Yes (Hospitalization)
  Sender: FDA-Public Use
  Company Number: 2007AL002437

PATIENT
  Age: 82 Year
  Sex: Female

DRUGS (5)
  1. TIZANIDINE HYDROCHLORIDE [Suspect]
     Indication: SPINAL COLUMN STENOSIS
     Dosage: 2 MG;BID;PO
     Route: 048
     Dates: start: 20070604, end: 20070612
  2. LEVOTHYROXINE SODIUM [Concomitant]
  3. REGLAN [Concomitant]
  4. CORTEF [Concomitant]
  5. AGRYLIN [Concomitant]

REACTIONS (1)
  - DIPLOPIA [None]
